FAERS Safety Report 23267097 (Version 1)
Quarter: 2023Q4

REPORT INFORMATION
  Report Type: Spontaneous
  Country: CN (occurrence: CN)
  Receive Date: 20231206
  Receipt Date: 20231206
  Transmission Date: 20240110
  Serious: Yes (Life-Threatening, Hospitalization, Other)
  Sender: FDA-Public Use
  Company Number: CN-PFIZER INC-PV202300196191

PATIENT
  Age: 53 Year
  Sex: Male
  Weight: 75 kg

DRUGS (5)
  1. CYTARABINE [Suspect]
     Active Substance: CYTARABINE
     Indication: Acute myeloid leukaemia
     Dosage: 95 MG, 2X/DAY
     Route: 041
     Dates: start: 20231030, end: 20231104
  2. CYCLOPHOSPHAMIDE [Suspect]
     Active Substance: CYCLOPHOSPHAMIDE
     Indication: Acute myeloid leukaemia
     Dosage: 0.665 G, 3X/DAY
     Route: 041
     Dates: start: 20231031, end: 20231103
  3. MITOXANTRONE HYDROCHLORIDE [Suspect]
     Active Substance: MITOXANTRONE HYDROCHLORIDE
     Indication: Acute myeloid leukaemia
     Dosage: 10 MG, 11 TIMES PER DAY (AS REPORTED)
     Route: 041
     Dates: start: 20231030, end: 20231031
  4. MITOXANTRONE HYDROCHLORIDE [Suspect]
     Active Substance: MITOXANTRONE HYDROCHLORIDE
     Dosage: 18 MG, 1X/DAY
     Route: 041
     Dates: start: 20231101, end: 20231101
  5. PREDNISONE ACETATE [Suspect]
     Active Substance: PREDNISONE ACETATE
     Indication: Acute myeloid leukaemia
     Dosage: 5 MG, 1X/DAY
     Route: 048
     Dates: start: 20231027, end: 20231110

REACTIONS (3)
  - Anal abscess [Recovering/Resolving]
  - Pyrexia [Recovering/Resolving]
  - Myelosuppression [Unknown]

NARRATIVE: CASE EVENT DATE: 20231104
